FAERS Safety Report 6765362-9 (Version None)
Quarter: 2010Q2

REPORT INFORMATION
  Report Type: 
  Country: None (occurrence: None)
  Receive Date: 20100611
  Receipt Date: 20100602
  Transmission Date: 20101027
  Serious: Yes (Hospitalization)
  Sender: FDA-Public Use
  Company Number: JP-JNJFOC-20100602000

PATIENT
  Sex: Female
  Weight: 47 kg

DRUGS (7)
  1. DOXIL [Suspect]
     Indication: OVARIAN CANCER RECURRENT
     Route: 042
  2. DOXIL [Suspect]
     Route: 042
  3. CRAVIT [Concomitant]
     Route: 048
  4. FULCALIQ 3 [Concomitant]
     Route: 042
  5. ELEMENMIC [Concomitant]
     Route: 042
  6. SANDOSTATIN [Concomitant]
     Route: 065
  7. MOHRUS TAPE [Concomitant]
     Dosage: AS NECCESSARY
     Route: 062

REACTIONS (1)
  - SMALL INTESTINAL OBSTRUCTION [None]
